FAERS Safety Report 23854692 (Version 1)
Quarter: 2024Q2

REPORT INFORMATION
  Report Type: Report from Study
  Country: ES (occurrence: ES)
  Receive Date: 20240514
  Receipt Date: 20240514
  Transmission Date: 20240715
  Serious: Yes (Other)
  Sender: FDA-Public Use
  Company Number: ES-LUNDBECK-DKLU3077281

PATIENT
  Age: 27 Year
  Sex: Male

DRUGS (12)
  1. ESCITALOPRAM [Suspect]
     Active Substance: ESCITALOPRAM OXALATE
     Indication: Product used for unknown indication
     Dosage: UNK
     Route: 065
  2. ESCITALOPRAM [Suspect]
     Active Substance: ESCITALOPRAM OXALATE
     Dosage: 20 MILLIGRAM
     Route: 065
  3. VORTIOXETINE [Suspect]
     Active Substance: VORTIOXETINE
     Indication: Persistent depressive disorder
     Dosage: UNK
     Route: 065
  4. VORTIOXETINE [Suspect]
     Active Substance: VORTIOXETINE
     Dosage: UNK
     Route: 065
  5. OLANZAPINE [Concomitant]
     Active Substance: OLANZAPINE
     Indication: Product used for unknown indication
     Dosage: UNK
     Route: 065
  6. OLANZAPINE [Concomitant]
     Active Substance: OLANZAPINE
     Dosage: 5 MILLIGRAM
     Route: 065
  7. GABAPENTIN [Concomitant]
     Active Substance: GABAPENTIN
     Indication: Drug use disorder
     Dosage: UNK
     Route: 065
  8. GABAPENTIN [Concomitant]
     Active Substance: GABAPENTIN
     Dosage: UNK
     Route: 065
  9. KETAMINE [Concomitant]
     Active Substance: KETAMINE
     Indication: Product used for unknown indication
     Dosage: 50 MILLIGRAM (INTRANASAL)
     Route: 065
  10. KETAMINE [Concomitant]
     Active Substance: KETAMINE
     Dosage: 200 MILLIGRAM (INTRANASAL)
     Route: 065
  11. KETAMINE [Concomitant]
     Active Substance: KETAMINE
     Dosage: 150 MILLIGRAM (INTRANASAL)
     Route: 065
  12. KETAMINE [Concomitant]
     Active Substance: KETAMINE
     Dosage: UNK
     Route: 065

REACTIONS (3)
  - Suicidal ideation [Recovered/Resolved]
  - Persistent depressive disorder [Recovered/Resolved]
  - Drug ineffective [Unknown]
